FAERS Safety Report 10823712 (Version 2)
Quarter: 2015Q1

REPORT INFORMATION
  Report Type: Spontaneous
  Country: SA (occurrence: SA)
  Receive Date: 20150218
  Receipt Date: 20150220
  Transmission Date: 20150721
  Serious: Yes (Hospitalization)
  Sender: FDA-Public Use
  Company Number: PHHY2015SA016336

PATIENT
  Age: 2 Year
  Sex: Male

DRUGS (1)
  1. CLONIDINE. [Suspect]
     Active Substance: CLONIDINE
     Indication: PRODUCT USED FOR UNKNOWN INDICATION
     Route: 065

REACTIONS (6)
  - Hypotonia [Recovering/Resolving]
  - Miosis [Recovering/Resolving]
  - Toxicity to various agents [Recovering/Resolving]
  - Atrioventricular block first degree [Recovering/Resolving]
  - Lethargy [Recovering/Resolving]
  - Hypotension [Recovering/Resolving]
